FAERS Safety Report 11436503 (Version 1)
Quarter: 2015Q3

REPORT INFORMATION
  Report Type: Spontaneous
  Country: US (occurrence: US)
  Receive Date: 20150821
  Receipt Date: 20150821
  Transmission Date: 20151125
  Serious: No
  Sender: FDA-Public Use
  Company Number: US-ELI_LILLY_AND_COMPANY-US201406002814

PATIENT
  Age: 72 Year
  Sex: Female

DRUGS (1)
  1. HUMULIN N [Suspect]
     Active Substance: INSULIN HUMAN
     Dosage: UNK
     Route: 065

REACTIONS (7)
  - Abasia [Unknown]
  - Bronchitis [Unknown]
  - Medication error [Unknown]
  - Lower extremity mass [Unknown]
  - Muscle spasms [Unknown]
  - Product tampering [Unknown]
  - Diabetes mellitus inadequate control [Unknown]
